FAERS Safety Report 5761605-9 (Version None)
Quarter: 2008Q2

REPORT INFORMATION
  Report Type: 
  Country: None (occurrence: None)
  Receive Date: 20080606
  Receipt Date: 20080527
  Transmission Date: 20081010
  Serious: Yes (Other)
  Sender: FDA-Public Use
  Company Number: GB-PFIZER INC-2008008446

PATIENT
  Age: 46 Year
  Sex: Female

DRUGS (13)
  1. PREGABALIN [Suspect]
     Indication: TUMOUR PAIN
  2. ACTIQ [Interacting]
     Indication: TUMOUR PAIN
     Dosage: DAILY DOSE:400MCG
     Route: 050
  3. FENTANYL TRANSDERMAL SYSTEM [Interacting]
     Indication: TUMOUR PAIN
     Route: 062
  4. BECLOMETHASONE DIPROPIONATE [Concomitant]
     Route: 045
  5. CITALOPRAM HYDROBROMIDE [Concomitant]
  6. DICLOFENAC SODIUM [Concomitant]
  7. DOCUSATE SODIUM [Concomitant]
  8. HYOSCINE HBR HYT [Concomitant]
  9. LANSOPRAZOLE [Concomitant]
  10. NULYTELY [Concomitant]
  11. NIFEDIPINE [Concomitant]
  12. ACETAMINOPHEN [Concomitant]
  13. SIMVASTATIN [Concomitant]

REACTIONS (3)
  - DRUG INTERACTION [None]
  - RESPIRATORY DEPRESSION [None]
  - SLEEP APNOEA SYNDROME [None]
